FAERS Safety Report 11051679 (Version 1)
Quarter: 2015Q2

REPORT INFORMATION
  Report Type: Spontaneous
  Country: JP (occurrence: JP)
  Receive Date: 20150421
  Receipt Date: 20150421
  Transmission Date: 20150821
  Serious: Yes (Death, Hospitalization, Other)
  Sender: FDA-Public Use
  Company Number: JP-TEVA-556317ISR

PATIENT
  Age: 40 Year
  Sex: Female

DRUGS (7)
  1. NEDAPLATIN [Suspect]
     Active Substance: NEDAPLATIN
     Indication: CERVIX CARCINOMA RECURRENT
     Dosage: 80 MG/M2, 3 CYCLES
     Route: 065
  2. CARBOPLATIN. [Suspect]
     Active Substance: CARBOPLATIN
     Indication: MALIGNANT NEOPLASM PROGRESSION
     Dosage: AUC AT 5 MG/ML, 7 CYCLES
     Route: 065
  3. NEDAPLATIN [Suspect]
     Active Substance: NEDAPLATIN
     Indication: CERVIX CARCINOMA STAGE II
     Dosage: 80 MG/M2, 1 CYCLE
     Route: 065
  4. IRINOTECAN [Suspect]
     Active Substance: IRINOTECAN
     Indication: CERVIX CARCINOMA STAGE II
     Dosage: 160 MG/M2, 1 CYCLE
     Route: 065
  5. IRINOTECAN [Suspect]
     Active Substance: IRINOTECAN
     Indication: CERVIX CARCINOMA RECURRENT
     Dosage: 160 MG/M2, 3 CYCLES
     Route: 065
  6. CISPLATIN. [Suspect]
     Active Substance: CISPLATIN
     Indication: CERVIX CARCINOMA STAGE II
     Dosage: 70 MG/M2, 6 CYCLES
     Route: 065
  7. DOCETAXEL. [Suspect]
     Active Substance: DOCETAXEL
     Indication: MALIGNANT NEOPLASM PROGRESSION
     Dosage: 75 MG/M2, 7 CYCLES
     Route: 065

REACTIONS (2)
  - Acute myeloid leukaemia [Fatal]
  - Infection [Fatal]
